FAERS Safety Report 9750199 (Version 1)
Quarter: 2013Q4

REPORT INFORMATION
  Report Type: Spontaneous
  Country: US (occurrence: US)
  Receive Date: 20131212
  Receipt Date: 20131212
  Transmission Date: 20140711
  Serious: Yes (Hospitalization)
  Sender: FDA-Public Use
  Company Number: US-GLAXOSMITHKLINE-A1053240A

PATIENT
  Age: 77 Year
  Sex: Female

DRUGS (1)
  1. ARIXTRA [Suspect]
     Indication: THROMBOSIS
     Dosage: 7.5MG UNKNOWN
     Route: 042
     Dates: start: 20120316

REACTIONS (1)
  - Investigation [Unknown]
